FAERS Safety Report 14977181 (Version 1)
Quarter: 2018Q2

REPORT INFORMATION
  Report Type: Report from Study
  Country: None (occurrence: ES)
  Receive Date: 20180606
  Receipt Date: 20180606
  Transmission Date: 20180711
  Serious: Yes (Hospitalization)
  Sender: FDA-Public Use
  Company Number: ES-ABBVIE-18K-144-2370200-00

PATIENT
  Age: 63 Year
  Sex: Male
  Weight: 90 kg

DRUGS (6)
  1. SOTAPOR [Concomitant]
     Indication: ARRHYTHMIA
     Route: 048
     Dates: start: 201804
  2. SINTROM [Concomitant]
     Active Substance: ACENOCOUMAROL
     Indication: SEIZURE
     Route: 048
     Dates: start: 201804
  3. HUMIRA [Suspect]
     Active Substance: ADALIMUMAB
     Indication: RHEUMATOID ARTHRITIS
     Route: 058
     Dates: start: 2017, end: 20180415
  4. DEMILOS [Concomitant]
     Active Substance: CALCIUM CARBONATE\CHOLECALCIFEROL
     Indication: OSTEOPOROSIS
     Route: 048
     Dates: start: 2016
  5. HUMIRA [Suspect]
     Active Substance: ADALIMUMAB
     Indication: RHEUMATOID ARTHRITIS
     Route: 058
     Dates: start: 20150301, end: 2017
  6. PROLIA [Concomitant]
     Active Substance: DENOSUMAB
     Indication: OSTEOPOROSIS
     Route: 050
     Dates: start: 2016

REACTIONS (8)
  - Dizziness [Recovered/Resolved]
  - Seizure [Recovering/Resolving]
  - Atrial septal defect acquired [Recovering/Resolving]
  - Vision blurred [Recovered/Resolved]
  - Urinary tract infection [Recovering/Resolving]
  - Mobility decreased [Recovered/Resolved]
  - Atrial fibrillation [Recovering/Resolving]
  - Hypoaesthesia [Recovered/Resolved]

NARRATIVE: CASE EVENT DATE: 20180415
